FAERS Safety Report 4465449-X (Version None)
Quarter: 2004Q4

REPORT INFORMATION
  Report Type: 
  Country: None (occurrence: None)
  Receive Date: 20041004
  Receipt Date: 20040714
  Transmission Date: 20050328
  Serious: Yes (Hospitalization)
  Sender: FDA-Public Use
  Company Number: US-BRISTOL-MYERS SQUIBB COMPANY-12640082

PATIENT
  Age: 47 Year
  Sex: Female
  Weight: 109 kg

DRUGS (3)
  1. SUSTIVA [Suspect]
     Indication: ACQUIRED IMMUNODEFICIENCY SYNDROME
     Route: 048
     Dates: start: 20030801
  2. DIDANOSINE EC [Concomitant]
  3. TENOFOVIR [Concomitant]

REACTIONS (2)
  - POLYMORPHIC LIGHT ERUPTION [None]
  - STAPHYLOCOCCAL INFECTION [None]
